FAERS Safety Report 26051029 (Version 1)
Quarter: 2025Q4

REPORT INFORMATION
  Report Type: Report from Study
  Country: EU (occurrence: EU)
  Receive Date: 20251117
  Receipt Date: 20251117
  Transmission Date: 20260117
  Serious: Yes (Hospitalization)
  Sender: ABBVIE
  Company Number: EU-ABBVIE-6457304

PATIENT
  Age: 80 Year
  Sex: Male

DRUGS (1)
  1. FOSCARBIDOPA\FOSLEVODOPA [Suspect]
     Active Substance: FOSCARBIDOPA\FOSLEVODOPA
     Indication: Parkinson^s disease
     Dosage: CRN: 0.31 ML/H CR: 0.51 ML/H CRH: 0.53 ML/H ED: 0.3 ML (SD: 0.60 ML)
     Route: 058
     Dates: start: 20241007

REACTIONS (6)
  - Dizziness [Recovering/Resolving]
  - Pollakiuria [Not Recovered/Not Resolved]
  - Device occlusion [Recovered/Resolved]
  - Device issue [Recovered/Resolved]
  - Incorrect dose administered [Unknown]
  - Infusion site discharge [Not Recovered/Not Resolved]

NARRATIVE: CASE EVENT DATE: 20251001
